FAERS Safety Report 25578830 (Version 5)
Quarter: 2025Q3

REPORT INFORMATION
  Report Type: Spontaneous
  Country: US (occurrence: US)
  Receive Date: 20250718
  Receipt Date: 20250902
  Transmission Date: 20251020
  Serious: Yes (Hospitalization, Other)
  Sender: SANDOZ
  Company Number: US-002147023-NVSC2025US101315

PATIENT
  Age: 63 Year
  Sex: Female
  Weight: 43.991 kg

DRUGS (17)
  1. AZITHROMYCIN [Suspect]
     Active Substance: AZITHROMYCIN
     Indication: Mycobacterium avium complex infection
     Dosage: 500 MG, QD
     Route: 065
     Dates: start: 20241209, end: 20250616
  2. AZITHROMYCIN [Suspect]
     Active Substance: AZITHROMYCIN
     Indication: Atypical mycobacterial infection
     Route: 065
     Dates: end: 20250701
  3. ETHAMBUTOL [Suspect]
     Active Substance: ETHAMBUTOL HYDROCHLORIDE
     Indication: Mycobacterium avium complex infection
     Dosage: 800 MG, QD
     Route: 065
     Dates: start: 20241209, end: 20250616
  4. ETHAMBUTOL [Suspect]
     Active Substance: ETHAMBUTOL HYDROCHLORIDE
     Indication: Atypical mycobacterial infection
     Route: 065
     Dates: end: 20250701
  5. LAMPRENE [Suspect]
     Active Substance: CLOFAZIMINE
     Indication: Mycobacterium avium complex infection
     Dosage: 100 MG, QD
     Route: 048
     Dates: start: 20250319, end: 202505
  6. LAMPRENE [Suspect]
     Active Substance: CLOFAZIMINE
     Indication: Atypical mycobacterial infection
     Dosage: 100 MG, QD
     Route: 048
     Dates: start: 20250622, end: 20250701
  7. RIFABUTIN [Suspect]
     Active Substance: RIFABUTIN
     Indication: Mycobacterium avium complex infection
     Dosage: 300 MG, QD
     Route: 065
     Dates: start: 20241209, end: 20250616
  8. RIFABUTIN [Suspect]
     Active Substance: RIFABUTIN
     Indication: Atypical mycobacterial infection
     Route: 065
     Dates: end: 20250701
  9. ALBUTEROL [Concomitant]
     Active Substance: ALBUTEROL
     Indication: Product used for unknown indication
     Route: 055
  10. FLEXERIL [Concomitant]
     Active Substance: CYCLOBENZAPRINE HYDROCHLORIDE
     Indication: Product used for unknown indication
     Route: 065
  11. LOPRESSOR [Concomitant]
     Active Substance: METOPROLOL TARTRATE
     Indication: Product used for unknown indication
     Dosage: 50 MG, QD
     Route: 048
  12. PAXIL [Concomitant]
     Active Substance: PAROXETINE HYDROCHLORIDE
     Indication: Product used for unknown indication
     Dosage: 10 MG, QD
     Route: 048
  13. STIOLTO RESPIMAT [Concomitant]
     Active Substance: OLODATEROL HYDROCHLORIDE\TIOTROPIUM BROMIDE MONOHYDRATE
     Indication: Product used for unknown indication
     Dosage: 2.5 UG, BID (2 PUFFS)
     Route: 055
  14. SYNTHROID [Concomitant]
     Active Substance: LEVOTHYROXINE SODIUM
     Indication: Product used for unknown indication
     Dosage: 25 UG, QD
     Route: 048
  15. VITAMIN B12 [Concomitant]
     Active Substance: CYANOCOBALAMIN
     Indication: Product used for unknown indication
     Dosage: 100 UG, QD
     Route: 048
  16. VITAMIN D [Concomitant]
     Active Substance: VITAMIN D NOS
     Indication: Product used for unknown indication
     Dosage: 2000 U, QD
     Route: 048
  17. XANAX [Concomitant]
     Active Substance: ALPRAZOLAM
     Indication: Product used for unknown indication
     Dosage: 0.5 MG, QD (PRN)
     Route: 048

REACTIONS (8)
  - Hypercalcaemia [Recovered/Resolved]
  - Hyperphosphataemia [Recovered/Resolved]
  - Hypercalcaemia [Recovered/Resolved]
  - Nausea [Recovered/Resolved]
  - Hepatic enzyme increased [Recovering/Resolving]
  - Diarrhoea [Recovered/Resolved]
  - Vomiting [Recovered/Resolved]
  - Electrocardiogram QT prolonged [Recovered/Resolved]

NARRATIVE: CASE EVENT DATE: 20250616
